FAERS Safety Report 25015089 (Version 2)
Quarter: 2025Q1

REPORT INFORMATION
  Report Type: Report from Study
  Country: NL (occurrence: NL)
  Receive Date: 20250226
  Receipt Date: 20250317
  Transmission Date: 20250409
  Serious: Yes (Death, Other)
  Sender: VERITY PHARMACEUTICALS INC.
  Company Number: NL-VER-202500012

PATIENT
  Sex: Male
  Weight: 74 kg

DRUGS (2)
  1. TRIPTORELIN PAMOATE [Suspect]
     Active Substance: TRIPTORELIN PAMOATE
     Indication: Prostate cancer
     Dosage: STARTED FROM 19-NOV-2024.??SUSPENSION FOR INJECTION
     Route: 030
     Dates: start: 20240919
  2. TRIPTORELIN PAMOATE [Suspect]
     Active Substance: TRIPTORELIN PAMOATE
     Indication: Prostate cancer
     Dosage: STARTED FROM: 23-MAY-2024??SUSPENSION FOR INJECTION
     Route: 030
     Dates: start: 20240523

REACTIONS (2)
  - Influenza [Fatal]
  - Pneumonia [Fatal]
